FAERS Safety Report 8539036-8 (Version None)
Quarter: 2012Q3

REPORT INFORMATION
  Report Type: 
  Country: None (occurrence: None)
  Receive Date: 20120726
  Receipt Date: 20120723
  Transmission Date: 20120928
  Serious: Yes (Other)
  Sender: FDA-Public Use
  Company Number: PHHY2012CR063802

PATIENT
  Age: 34 Year
  Sex: Female

DRUGS (4)
  1. BUDESONIDE [Suspect]
     Indication: ASTHMA
     Dosage: 200 UG, BID
     Dates: start: 20110401, end: 20111001
  2. NASONEX [Concomitant]
     Dosage: UNK UKN, UNK
  3. RHINOCORT [Concomitant]
  4. FORADIL [Suspect]
     Indication: ASTHMA
     Dosage: 12 UG, BID
     Dates: start: 20110401, end: 20111001

REACTIONS (2)
  - PROCEDURAL PAIN [None]
  - MATERNAL EXPOSURE DURING PREGNANCY [None]
